FAERS Safety Report 24683877 (Version 5)
Quarter: 2025Q3

REPORT INFORMATION
  Report Type: Spontaneous
  Country: JP (occurrence: JP)
  Receive Date: 20241202
  Receipt Date: 20250803
  Transmission Date: 20251021
  Serious: Yes (Other)
  Sender: ALEXION PHARMACEUTICALS
  Company Number: JP-ASTRAZENECA-240066071_012620_P_1

PATIENT
  Age: 62 Year
  Sex: Female
  Weight: 48 kg

DRUGS (25)
  1. FASLODEX [Suspect]
     Active Substance: FULVESTRANT
  2. FASLODEX [Suspect]
     Active Substance: FULVESTRANT
     Dosage: 500 MILLIGRAM, Q4W
     Dates: start: 20240703, end: 20240814
  3. TRUQAP [Suspect]
     Active Substance: CAPIVASERTIB
     Indication: Breast cancer
     Dosage: ON A 4-DAYS-ON, 3-DAYS-OFF SCHEDULE
     Dates: start: 20240703, end: 20240729
  4. TRUQAP [Suspect]
     Active Substance: CAPIVASERTIB
     Dosage: ON A 4-DAYS-ON, 3-DAYS-OFF SCHEDULE
     Dates: start: 20240814, end: 20240820
  5. TRUQAP [Suspect]
     Active Substance: CAPIVASERTIB
     Dosage: ON A 4-DAYS-ON, 3-DAYS-OFF SCHEDULE
     Dates: start: 20240821, end: 20240825
  6. MIROGABALIN BESYLATE [Concomitant]
     Active Substance: MIROGABALIN BESYLATE
     Indication: Neuropathy peripheral
  7. MIROGABALIN BESYLATE [Concomitant]
     Active Substance: MIROGABALIN BESYLATE
  8. REBAMIPIDE [Concomitant]
     Active Substance: REBAMIPIDE
     Indication: Gastritis
     Dosage: 300 MILLIGRAM, TID
  9. REBAMIPIDE [Concomitant]
     Active Substance: REBAMIPIDE
  10. REBAMIPIDE [Concomitant]
     Active Substance: REBAMIPIDE
  11. REBAMIPIDE [Concomitant]
     Active Substance: REBAMIPIDE
     Dosage: 300 MILLIGRAM
  12. LOXOPROFEN SODIUM [Concomitant]
     Active Substance: LOXOPROFEN SODIUM
  13. LOXOPROFEN SODIUM [Concomitant]
     Active Substance: LOXOPROFEN SODIUM
  14. LOCOID [Concomitant]
     Active Substance: HYDROCORTISONE BUTYRATE
  15. LOCOID [Concomitant]
     Active Substance: HYDROCORTISONE BUTYRATE
  16. ACETAMINOPHEN\TRAMADOL HYDROCHLORIDE [Concomitant]
     Active Substance: ACETAMINOPHEN\TRAMADOL HYDROCHLORIDE
  17. ACETAMINOPHEN\TRAMADOL HYDROCHLORIDE [Concomitant]
     Active Substance: ACETAMINOPHEN\TRAMADOL HYDROCHLORIDE
  18. METOCLOPRAMIDE [Concomitant]
     Active Substance: METOCLOPRAMIDE
  19. METOCLOPRAMIDE [Concomitant]
     Active Substance: METOCLOPRAMIDE
  20. PREDNISOLONE [Concomitant]
     Active Substance: PREDNISOLONE
  21. PREDNISOLONE [Concomitant]
     Active Substance: PREDNISOLONE
  22. VONOPRAZAN FUMARATE [Concomitant]
     Active Substance: VONOPRAZAN FUMARATE
  23. VONOPRAZAN FUMARATE [Concomitant]
     Active Substance: VONOPRAZAN FUMARATE
  24. FLUTICASONE FUROATE [Concomitant]
     Active Substance: FLUTICASONE FUROATE
  25. FLUTICASONE FUROATE [Concomitant]
     Active Substance: FLUTICASONE FUROATE

REACTIONS (2)
  - Diarrhoea [Recovered/Resolved]
  - Renal impairment [Recovered/Resolved]

NARRATIVE: CASE EVENT DATE: 20240717
